FAERS Safety Report 21898426 (Version 1)
Quarter: 2023Q1

REPORT INFORMATION
  Report Type: Spontaneous
  Country: CO (occurrence: CO)
  Receive Date: 20230123
  Receipt Date: 20230123
  Transmission Date: 20230418
  Serious: Yes (Other)
  Sender: FDA-Public Use
  Company Number: CO-PFIZER INC-PV202300012163

PATIENT
  Age: 50 Year
  Sex: Female

DRUGS (1)
  1. SUTENT [Suspect]
     Active Substance: SUNITINIB MALATE
     Dosage: 50 MG
     Route: 048

REACTIONS (2)
  - Blindness [Unknown]
  - Ischaemia [Unknown]
